FAERS Safety Report 4436685-3 (Version None)
Quarter: 2004Q3

REPORT INFORMATION
  Report Type: 
  Country: None (occurrence: None)
  Receive Date: 20040827
  Receipt Date: 20040827
  Transmission Date: 20050211
  Serious: Yes (Hospitalization)
  Sender: FDA-Public Use
  Company Number: None

PATIENT
  Sex: Male

DRUGS (10)
  1. FLUDARABINE PHOSPHATE [Suspect]
     Indication: ACUTE MYELOID LEUKAEMIA
     Dosage: 70MG, IV DAILY
     Route: 042
     Dates: start: 20040607, end: 20040611
  2. MELPHALAN [Suspect]
     Indication: STEM CELL TRANSPLANT
     Dosage: 320 MG, IV DAILY
     Route: 042
     Dates: start: 20040612
  3. CAMPATH [Suspect]
  4. BACTRIM [Concomitant]
  5. ACYCLOVIR [Concomitant]
  6. PREDNISONE [Concomitant]
  7. PROGRAF [Concomitant]
  8. DIFLUCAN [Concomitant]
  9. PEPCID [Concomitant]
  10. COUMADIN [Concomitant]

REACTIONS (5)
  - ARTHRALGIA [None]
  - BONE FORMATION INCREASED [None]
  - CULTURE URINE POSITIVE [None]
  - POLLAKIURIA [None]
  - SPINAL OSTEOARTHRITIS [None]
